FAERS Safety Report 23431031 (Version 1)
Quarter: 2024Q1

REPORT INFORMATION
  Report Type: Spontaneous
  Country: IN (occurrence: IN)
  Receive Date: 20240123
  Receipt Date: 20240123
  Transmission Date: 20240410
  Serious: Yes (Death)
  Sender: FDA-Public Use
  Company Number: IN-STRIDES ARCOLAB LIMITED-2024SP000785

PATIENT
  Age: 14 Year
  Sex: Male

DRUGS (11)
  1. ETOPOSIDE [Suspect]
     Active Substance: ETOPOSIDE
     Indication: Mediastinum neoplasm
     Dosage: 500 MILLIGRAM/SQ. METER, CYCLICAL (AS PER PEB CHEMOTHERAPY PROTOCOL)
     Route: 065
  2. ETOPOSIDE [Suspect]
     Active Substance: ETOPOSIDE
     Indication: Germ cell neoplasm
  3. CISPLATIN [Suspect]
     Active Substance: CISPLATIN
     Indication: Mediastinum neoplasm
     Dosage: 100 MILLIGRAM/SQ. METER, CYCLICAL (AS PER PEB CHEMOTHERAPY PROTOCOL)
     Route: 065
  4. CISPLATIN [Suspect]
     Active Substance: CISPLATIN
     Indication: Germ cell neoplasm
  5. BLEOMYCIN [Suspect]
     Active Substance: BLEOMYCIN SULFATE
     Indication: Mediastinum neoplasm
     Dosage: UNK, CYCLICAL (15 UNITS/M2, AS PER PEB CHEMOTHERAPY PROTOCOL)
     Route: 065
  6. BLEOMYCIN [Suspect]
     Active Substance: BLEOMYCIN SULFATE
     Indication: Germ cell neoplasm
  7. AZACITIDINE [Suspect]
     Active Substance: AZACITIDINE
     Indication: Acute myeloid leukaemia
     Dosage: UNK, CYCLICAL (ONE CYCLE)
     Route: 065
  8. FLUDARABINE [Suspect]
     Active Substance: FLUDARABINE PHOSPHATE
     Indication: Acute myeloid leukaemia
     Dosage: UNK
     Route: 065
  9. FLUDARABINE [Suspect]
     Active Substance: FLUDARABINE PHOSPHATE
     Indication: Salvage therapy
  10. CYTARABINE [Suspect]
     Active Substance: CYTARABINE
     Indication: Acute myeloid leukaemia
     Dosage: UNK
     Route: 065
  11. CYTARABINE [Suspect]
     Active Substance: CYTARABINE
     Indication: Salvage therapy

REACTIONS (4)
  - Acute myeloid leukaemia [Fatal]
  - Klebsiella sepsis [Fatal]
  - Bacterial infection [Fatal]
  - Off label use [Unknown]
